FAERS Safety Report 9099975 (Version 1)
Quarter: 2013Q1

REPORT INFORMATION
  Report Type: Spontaneous
  Country: US (occurrence: US)
  Receive Date: 20130214
  Receipt Date: 20130214
  Transmission Date: 20140127
  Serious: No
  Sender: FDA-Public Use
  Company Number: US-PFIZER INC-2013057680

PATIENT
  Age: 55 Year
  Sex: Female

DRUGS (13)
  1. INLYTA [Suspect]
     Indication: RENAL CANCER
     Dosage: 5 MG, UNK
     Dates: start: 20130124
  2. CELEBREX [Concomitant]
     Dosage: UNK
  3. NEXIUM [Concomitant]
     Dosage: UNK
  4. HYDRALAZINE HYDROCHLORIDE [Concomitant]
     Dosage: UNK
  5. PRAVASTATIN SODIUM [Concomitant]
     Dosage: UNK
  6. HYDROCHLOROTHIAZIDE [Concomitant]
     Dosage: UNK
  7. PROMACTA [Concomitant]
     Dosage: UNK
  8. INTRONA [Concomitant]
     Dosage: UNK
  9. TASIGNA [Concomitant]
     Dosage: UNK
  10. KEPPRA [Concomitant]
     Dosage: UNK
  11. VERAPAMIL HYDROCHLORIDE [Concomitant]
     Dosage: UNK
  12. LANTUS [Concomitant]
     Dosage: UNK
  13. ZOLINZA [Concomitant]
     Dosage: UNK

REACTIONS (1)
  - Dizziness [Unknown]
